FAERS Safety Report 10649938 (Version 1)
Quarter: 2014Q4

REPORT INFORMATION
  Report Type: Report from Study
  Country: US (occurrence: US)
  Receive Date: 20141212
  Receipt Date: 20141212
  Transmission Date: 20150529
  Serious: Yes (Hospitalization)
  Sender: FDA-Public Use
  Company Number: US-009507513-1412USA005121

PATIENT
  Age: 60 Year
  Sex: Female

DRUGS (4)
  1. VORINOSTAT [Suspect]
     Active Substance: VORINOSTAT
     Dosage: DAYS 14-21 OF EACH CYCLE
     Route: 048
     Dates: start: 20141009, end: 20141015
  2. VORINOSTAT [Suspect]
     Active Substance: VORINOSTAT
     Indication: GLIOBLASTOMA
     Dosage: DAYS 1-7 CYCLE
     Route: 048
     Dates: start: 20140925, end: 20141001
  3. VORINOSTAT [Suspect]
     Active Substance: VORINOSTAT
     Dosage: CYCLICAL
     Route: 048
     Dates: start: 20141023
  4. BEVACIZUMAB [Suspect]
     Active Substance: BEVACIZUMAB
     Indication: GLIOBLASTOMA
     Dosage: EVERY TWO WEEKS: CYCLE 1 DAY 1: 25-SEP-2014, CYCLE 1 DAY 14: 09-OCT-2014
     Route: 042
     Dates: start: 20140925, end: 20141009

REACTIONS (1)
  - Embolism [Not Recovered/Not Resolved]

NARRATIVE: CASE EVENT DATE: 20141023
